FAERS Safety Report 8778571 (Version 2)
Quarter: 2012Q4

REPORT INFORMATION
  Report Type: 
  Country: US (occurrence: US)
  Receive Date: 20120906
  Receipt Date: 20121114
  Transmission Date: 20130627
  Serious: Yes (Hospitalization)
  Sender: FDA-Public Use
  Company Number: US-ELI_LILLY_AND_COMPANY-US201209000920

PATIENT
  Age: 81 Year
  Sex: Female
  Weight: 75.74 kg

DRUGS (2)
  1. FORTEO [Suspect]
     Indication: OSTEOPOROSIS
     Dosage: 20 u, qd
     Route: 058
     Dates: end: 20111213
  2. FORTEO [Suspect]
     Dosage: 20 u, qd
     Route: 058
     Dates: start: 201207

REACTIONS (2)
  - Hip fracture [Recovered/Resolved]
  - Hip arthroplasty [Recovered/Resolved]
